FAERS Safety Report 6158199-5 (Version None)
Quarter: 2009Q2

REPORT INFORMATION
  Report Type: 
  Country: None (occurrence: None)
  Receive Date: 20090417
  Receipt Date: 20090409
  Transmission Date: 20091009
  Serious: Yes (Life-Threatening, Other)
  Sender: FDA-Public Use
  Company Number: US-BAYER-200918041NA

PATIENT
  Age: 35 Year
  Sex: Female

DRUGS (1)
  1. YAZ [Suspect]
     Indication: ACNE
     Route: 048

REACTIONS (4)
  - CARDIAC ARREST [None]
  - CHEST PAIN [None]
  - CORONARY ARTERY OCCLUSION [None]
  - GASTRITIS [None]
